FAERS Safety Report 5457777-6 (Version None)
Quarter: 2007Q3

REPORT INFORMATION
  Report Type: 
  Country: None (occurrence: None)
  Receive Date: 20070918
  Receipt Date: 20070907
  Transmission Date: 20080115
  Serious: Yes (Other)
  Sender: FDA-Public Use
  Company Number: JP-PFIZER INC-2007075377

PATIENT
  Age: 76 Year
  Sex: Male

DRUGS (1)
  1. SULPERAZON [Suspect]

REACTIONS (1)
  - PLATELET COUNT DECREASED [None]
